FAERS Safety Report 10038528 (Version 3)
Quarter: 2014Q2

REPORT INFORMATION
  Report Type: Spontaneous
  Country: US (occurrence: US)
  Receive Date: 20140326
  Receipt Date: 20140630
  Transmission Date: 20141212
  Serious: Yes (Other)
  Sender: FDA-Public Use
  Company Number: US-PFIZER INC-2014078974

PATIENT
  Age: 69 Year
  Sex: Female
  Weight: 91 kg

DRUGS (7)
  1. LIPITOR [Suspect]
     Indication: LOW DENSITY LIPOPROTEIN INCREASED
     Dosage: UNK, AS DIRECTED
     Route: 048
     Dates: start: 2009, end: 2011
  2. LIPITOR [Suspect]
     Indication: CARDIOVASCULAR EVENT PROPHYLAXIS
  3. SYNTHROID [Concomitant]
     Indication: THYROID DISORDER
     Dosage: UNK
  4. DYAZIDE [Concomitant]
     Indication: HYPERTENSION
     Dosage: UNK
  5. PAXIL [Concomitant]
     Indication: ANXIETY
     Dosage: UNK
     Dates: start: 1999
  6. LOTRIL [Concomitant]
     Indication: HYPERTENSION
     Dosage: UNK
     Dates: start: 1999
  7. NEURONTIN [Concomitant]
     Indication: NEUROPATHY PERIPHERAL
     Dosage: UNK
     Dates: start: 2006

REACTIONS (1)
  - Type 2 diabetes mellitus [Not Recovered/Not Resolved]
